FAERS Safety Report 10874808 (Version 2)
Quarter: 2015Q3

REPORT INFORMATION
  Report Type: Spontaneous
  Country: US (occurrence: US)
  Receive Date: 20150227
  Receipt Date: 20150806
  Transmission Date: 20151125
  Serious: Yes (Hospitalization, Other)
  Sender: FDA-Public Use
  Company Number: US-PURDUE-USA-2015-0121198

PATIENT
  Age: 63 Year
  Sex: Female
  Weight: 83.9 kg

DRUGS (7)
  1. ZOLPIDEM TARTRATE. [Concomitant]
     Active Substance: ZOLPIDEM TARTRATE
  2. MIRAPEX [Concomitant]
     Active Substance: PRAMIPEXOLE DIHYDROCHLORIDE
  3. TOPIRAMATE. [Concomitant]
     Active Substance: TOPIRAMATE
  4. DILAUDID [Suspect]
     Active Substance: HYDROMORPHONE HYDROCHLORIDE
     Indication: PRODUCT USED FOR UNKNOWN INDICATION
     Route: 065
  5. RESTORIL                           /00393701/ [Concomitant]
  6. HUMIRA [Suspect]
     Active Substance: ADALIMUMAB
     Indication: CROHN^S DISEASE
     Dosage: 40 MG, SEE TEXT
     Route: 058
     Dates: start: 20140502
  7. TYLENOL [Concomitant]
     Active Substance: ACETAMINOPHEN

REACTIONS (24)
  - Aspartate aminotransferase increased [Unknown]
  - C-reactive protein increased [Unknown]
  - Post procedural complication [Unknown]
  - Protein total increased [Unknown]
  - Gastric infection [Unknown]
  - Scoliosis [Unknown]
  - Lymphocyte count increased [Unknown]
  - Monocyte count increased [Unknown]
  - Blood urea decreased [Unknown]
  - Abdominal hernia [Unknown]
  - Dilatation intrahepatic duct acquired [Unknown]
  - Anion gap increased [Unknown]
  - Drug abuse [Unknown]
  - Neutrophil count increased [Unknown]
  - Lymphocyte count decreased [Unknown]
  - Blood potassium decreased [Unknown]
  - Nausea [Unknown]
  - Intestinal obstruction [Recovered/Resolved]
  - Atelectasis [Unknown]
  - Pyoderma gangrenosum [Unknown]
  - Impaired gastric emptying [Unknown]
  - Neutrophil count decreased [Unknown]
  - Blood urea nitrogen/creatinine ratio [Unknown]
  - Vomiting [Unknown]

NARRATIVE: CASE EVENT DATE: 20140705
